FAERS Safety Report 4336704-9 (Version None)
Quarter: 2004Q2

REPORT INFORMATION
  Report Type: 
  Country: None (occurrence: None)
  Receive Date: 20040412
  Receipt Date: 20030916
  Transmission Date: 20050107
  Serious: Yes (Death, Hospitalization)
  Sender: FDA-Public Use
  Company Number: US-BRISTOL-MYERS SQUIBB COMPANY-12383733

PATIENT
  Age: 55 Year
  Sex: Female
  Weight: 59 kg

DRUGS (15)
  1. REYATAZ [Interacting]
     Indication: HIV TEST POSITIVE
     Route: 048
     Dates: start: 20030821, end: 20030914
  2. VIDEX EC [Suspect]
  3. VERAPAMIL [Interacting]
  4. FUZEON [Suspect]
  5. PENTAMIDINE [Suspect]
     Dosage: ADMINISTERED WHILE IN THE ICU
     Dates: start: 20030901
  6. DIFLUCAN [Suspect]
     Indication: ORAL CANDIDIASIS
     Dates: start: 20030626
  7. VALTREX [Suspect]
     Indication: HERPES SIMPLEX
     Dates: start: 20030329, end: 20030914
  8. VALCYTE [Suspect]
     Indication: CYTOMEGALOVIRUS INFECTION
  9. EMTRICITABINE [Suspect]
  10. MEPRON [Concomitant]
     Indication: PNEUMOCYSTIS CARINII PNEUMONIA
  11. NORVASC [Concomitant]
  12. AVANDIA [Concomitant]
  13. SOLU-MEDROL [Concomitant]
  14. ANTIVERT [Concomitant]
  15. METOPROLOL [Concomitant]
     Indication: AORTIC ANEURYSM

REACTIONS (4)
  - DEATH [None]
  - DRUG INTERACTION [None]
  - ELECTROCARDIOGRAM QT PROLONGED [None]
  - PNEUMOCYSTIS CARINII PNEUMONIA [None]
